FAERS Safety Report 25891349 (Version 1)
Quarter: 2025Q4

REPORT INFORMATION
  Report Type: Spontaneous
  Country: US (occurrence: None)
  Receive Date: 20251007
  Receipt Date: 20251007
  Transmission Date: 20260118
  Serious: Yes (Other)
  Sender: FDA-CTU
  Company Number: None

PATIENT
  Age: 56 Year
  Sex: Female

DRUGS (1)
  1. ACTEMRA ACTPEN [Suspect]
     Active Substance: TOCILIZUMAB
     Dosage: FREQUENCY : EVERY OTHER WEEK;?

REACTIONS (5)
  - Headache [None]
  - Dizziness [None]
  - Dyspnoea [None]
  - Chest pain [None]
  - Infusion related reaction [None]
